FAERS Safety Report 4844896-8 (Version None)
Quarter: 2005Q4

REPORT INFORMATION
  Report Type: 
  Country: None (occurrence: None)
  Receive Date: 20051201
  Receipt Date: 20051201
  Transmission Date: 20060501
  Serious: Yes (Hospitalization)
  Sender: FDA-Public Use
  Company Number: None

PATIENT
  Sex: Male
  Weight: 103 kg

DRUGS (5)
  1. QUETIAPINE FUMARATE [Suspect]
     Indication: SCHIZOPHRENIA
     Dosage: PO
     Route: 048
  2. QUAIFENESIN [Concomitant]
  3. VALPROIC ACID [Concomitant]
  4. FLUOXETINE [Concomitant]
  5. DIPHENHYDRAMINE HCL [Concomitant]

REACTIONS (11)
  - ALCOHOL USE [None]
  - ASTHENIA [None]
  - BALANCE DISORDER [None]
  - BODY TEMPERATURE INCREASED [None]
  - COUGH [None]
  - DIFFICULTY IN WALKING [None]
  - FALL [None]
  - HEAD INJURY [None]
  - OVERDOSE [None]
  - PLEURITIC PAIN [None]
  - UPPER RESPIRATORY TRACT INFECTION [None]
